FAERS Safety Report 11088129 (Version 1)
Quarter: 2015Q2

REPORT INFORMATION
  Report Type: Spontaneous
  Country: US (occurrence: US)
  Receive Date: 20150504
  Receipt Date: 20150504
  Transmission Date: 20150821
  Serious: Yes (Hospitalization)
  Sender: FDA-Public Use
  Company Number: US-B.I. PHARMACEUTICALS,INC./RIDGEFIELD-2015-BI-22711BP

PATIENT
  Sex: Male

DRUGS (8)
  1. PROTONIX [Concomitant]
     Active Substance: PANTOPRAZOLE SODIUM
     Indication: PRODUCT USED FOR UNKNOWN INDICATION
     Dosage: 40 MG
     Route: 048
  2. BENADRYL [Concomitant]
     Active Substance: DIPHENHYDRAMINE HYDROCHLORIDE
     Indication: MULTIPLE ALLERGIES
     Dosage: 50 MG
     Route: 048
  3. COMBIVENT [Suspect]
     Active Substance: ALBUTEROL SULFATE\IPRATROPIUM BROMIDE
     Indication: CHRONIC OBSTRUCTIVE PULMONARY DISEASE
     Dosage: STRENGTH: 20 MCG / 100 MCG; DAILY DOSE: 160 MCG / 800 MCG
     Route: 055
     Dates: start: 201504
  4. IMDUR [Concomitant]
     Active Substance: ISOSORBIDE MONONITRATE
     Indication: PRODUCT USED FOR UNKNOWN INDICATION
     Dosage: 30 MG
     Route: 048
  5. NORVASC [Concomitant]
     Active Substance: AMLODIPINE BESYLATE
     Indication: PRODUCT USED FOR UNKNOWN INDICATION
     Dosage: 10 MG
     Route: 048
  6. COGENTIN [Concomitant]
     Active Substance: BENZTROPINE MESYLATE
     Indication: PRODUCT USED FOR UNKNOWN INDICATION
     Dosage: 1 MG
     Route: 048
  7. FLUPHENAZINE [Concomitant]
     Active Substance: FLUPHENAZINE
     Indication: SCHIZOPHRENIA
     Dosage: 10 MG
     Route: 048
  8. DULERA [Concomitant]
     Active Substance: FORMOTEROL FUMARATE DIHYDRATE\MOMETASONE FUROATE
     Indication: PRODUCT USED FOR UNKNOWN INDICATION
     Route: 055

REACTIONS (1)
  - Transient ischaemic attack [Recovered/Resolved]

NARRATIVE: CASE EVENT DATE: 201504
